FAERS Safety Report 6673784-X (Version None)
Quarter: 2010Q2

REPORT INFORMATION
  Report Type: 
  Country: None (occurrence: None)
  Receive Date: 20100407
  Receipt Date: 20100330
  Transmission Date: 20101027
  Serious: Yes (Life-Threatening)
  Sender: FDA-Public Use
  Company Number: 2009SP041918

PATIENT
  Age: 75 Year
  Sex: Male
  Weight: 46 kg

DRUGS (9)
  1. ROCURONIUM BROMIDE [Suspect]
     Indication: NEUROMUSCULAR BLOCKING THERAPY
     Dosage: 30 MG; INBO, 81.6 MG; IV
     Route: 042
     Dates: start: 20090520, end: 20090520
  2. ROCURONIUM BROMIDE [Suspect]
     Indication: NEUROMUSCULAR BLOCKING THERAPY
     Dosage: 30 MG; INBO, 81.6 MG; IV
     Route: 042
     Dates: start: 20090520, end: 20090520
  3. PROPOFOL [Concomitant]
  4. ULTIVA [Concomitant]
  5. LEPETAN [Concomitant]
  6. DROLEPTAN [Concomitant]
  7. ATROPINE [Concomitant]
  8. NEOSTIGMINE [Concomitant]
  9. PROPOFOL [Concomitant]

REACTIONS (4)
  - DEPRESSED LEVEL OF CONSCIOUSNESS [None]
  - HYPOVENTILATION [None]
  - OBSTRUCTIVE AIRWAYS DISORDER [None]
  - TONGUE OEDEMA [None]
